FAERS Safety Report 17030343 (Version 2)
Quarter: 2019Q4

REPORT INFORMATION
  Report Type: Report from Study
  Country: MX (occurrence: MX)
  Receive Date: 20191114
  Receipt Date: 20191128
  Transmission Date: 20200122
  Serious: Yes (Hospitalization, Other)
  Sender: FDA-Public Use
  Company Number: PHHY2017MX117060

PATIENT
  Age: 67 Year
  Sex: Male
  Weight: 44 kg

DRUGS (5)
  1. VIT D [Concomitant]
     Active Substance: VITAMIN D NOS
     Indication: PRODUCT USED FOR UNKNOWN INDICATION
     Route: 065
  2. SECOTEX [Concomitant]
     Active Substance: TAMSULOSIN
     Indication: PRODUCT USED FOR UNKNOWN INDICATION
     Route: 065
  3. ULTIBRO BREEZHALER [Suspect]
     Active Substance: GLYCOPYRRONIUM\INDACATEROL
     Indication: CHRONIC OBSTRUCTIVE PULMONARY DISEASE
  4. MIFLONIDE [Suspect]
     Active Substance: BUDESONIDE
     Indication: EMPHYSEMA
     Dosage: 2 DF (400 UG), QD
     Route: 065
     Dates: start: 201703
  5. ULTIBRO BREEZHALER [Suspect]
     Active Substance: GLYCOPYRRONIUM\INDACATEROL
     Indication: EMPHYSEMA
     Dosage: 1 DF (50 UG OF GLYCOPYRRONIUM BROMIDE AND 110 UG OF INDACATEROL), QD
     Route: 055
     Dates: start: 201703

REACTIONS (17)
  - Influenza [Not Recovered/Not Resolved]
  - Malaise [Not Recovered/Not Resolved]
  - Pyrexia [Recovering/Resolving]
  - Asphyxia [Recovering/Resolving]
  - Feeling abnormal [Recovering/Resolving]
  - Body temperature increased [Recovered/Resolved]
  - Cough [Not Recovered/Not Resolved]
  - Hallucination [Recovering/Resolving]
  - Throat irritation [Not Recovered/Not Resolved]
  - Depressed mood [Unknown]
  - General physical health deterioration [Unknown]
  - Peritonitis [Recovering/Resolving]
  - Gastritis [Recovering/Resolving]
  - Chills [Recovering/Resolving]
  - Pulmonary hypertension [Not Recovered/Not Resolved]
  - Fear [Unknown]
  - Oropharyngeal pain [Unknown]

NARRATIVE: CASE EVENT DATE: 20171001
